FAERS Safety Report 6695460-X (Version None)
Quarter: 2010Q2

REPORT INFORMATION
  Report Type: 
  Country: None (occurrence: None)
  Receive Date: 20100422
  Receipt Date: 20100422
  Transmission Date: 20101027
  Serious: Yes (Hospitalization)
  Sender: FDA-Public Use
  Company Number: None

PATIENT
  Sex: Female
  Weight: 62.4 kg

DRUGS (7)
  1. SOLIRIS [Suspect]
     Indication: PROPHYLAXIS AGAINST TRANSPLANT REJECTION
     Dosage: 1200 MG FOUR IV 600 MG NINE IV
     Route: 042
     Dates: start: 20100301, end: 20100308
  2. SOLIRIS [Suspect]
     Indication: PROPHYLAXIS AGAINST TRANSPLANT REJECTION
     Dosage: 1200 MG FOUR IV 600 MG NINE IV
     Route: 042
     Dates: start: 20100215
  3. SOLIRIS [Suspect]
     Indication: PROPHYLAXIS AGAINST TRANSPLANT REJECTION
     Dosage: 1200 MG FOUR IV 600 MG NINE IV
     Route: 042
     Dates: start: 20100216
  4. SOLIRIS [Suspect]
     Indication: PROPHYLAXIS AGAINST TRANSPLANT REJECTION
     Dosage: 1200 MG FOUR IV 600 MG NINE IV
     Route: 042
     Dates: start: 20100222
  5. SOLIRIS [Suspect]
     Indication: PROPHYLAXIS AGAINST TRANSPLANT REJECTION
     Dosage: 1200 MG FOUR IV 600 MG NINE IV
     Route: 042
     Dates: start: 20100302
  6. SOLIRIS [Suspect]
     Indication: PROPHYLAXIS AGAINST TRANSPLANT REJECTION
     Dosage: 1200 MG FOUR IV 600 MG NINE IV
     Route: 042
     Dates: start: 20100319
  7. SOLIRIS [Suspect]
     Indication: PROPHYLAXIS AGAINST TRANSPLANT REJECTION
     Dosage: 1200 MG FOUR IV 600 MG NINE IV
     Route: 042
     Dates: start: 20100402

REACTIONS (3)
  - HYDRONEPHROSIS [None]
  - LYMPHOCELE [None]
  - OEDEMA PERIPHERAL [None]
